FAERS Safety Report 7925757-4 (Version None)
Quarter: 2011Q4

REPORT INFORMATION
  Report Type: 
  Country: None (occurrence: None)
  Receive Date: 20111118
  Receipt Date: 20110412
  Transmission Date: 20120403
  Serious: No
  Sender: FDA-Public Use
  Company Number: US-AMGEN-USASP2011019399

PATIENT
  Age: 40 Year
  Sex: Female
  Weight: 79.365 kg

DRUGS (4)
  1. LABETALOL HCL [Concomitant]
     Dosage: 100 MG, UNK
  2. METHYLPREDNISOLONE [Concomitant]
     Dosage: 4 MG, UNK
  3. ENBREL [Suspect]
     Indication: PRODUCT USED FOR UNKNOWN INDICATION
     Dosage: 50 MG, QWK
     Route: 058
  4. PRENATAL                           /00231801/ [Concomitant]

REACTIONS (2)
  - ACNE [None]
  - RASH [None]
